FAERS Safety Report 6835736-6 (Version None)
Quarter: 2010Q3

REPORT INFORMATION
  Report Type: 
  Country: None (occurrence: None)
  Receive Date: 20100713
  Receipt Date: 20100708
  Transmission Date: 20110219
  Serious: Yes (Life-Threatening, Hospitalization)
  Sender: FDA-Public Use
  Company Number: CH-PFIZER INC-2007049025

PATIENT
  Age: 63 Year
  Sex: Male
  Weight: 85 kg

DRUGS (12)
  1. SUNITINIB MALATE [Suspect]
     Indication: RENAL CELL CARCINOMA
     Dosage: 50 MG, 1X/DAY
     Route: 048
     Dates: start: 20070323, end: 20070405
  2. SUNITINIB MALATE [Suspect]
     Dosage: 37.5 MG, 1X/DAY
     Route: 048
     Dates: start: 20070504, end: 20070613
  3. LESCOL [Suspect]
     Dosage: UNK
     Route: 048
     Dates: start: 20031021, end: 20070613
  4. ZOVIRAX [Concomitant]
     Dosage: UNK
     Route: 042
     Dates: start: 20070613, end: 20070614
  5. KONAKION [Concomitant]
     Dosage: UNK
     Route: 042
     Dates: start: 20070614, end: 20070614
  6. TOREM [Concomitant]
     Dosage: UNK
     Route: 048
  7. ASPIRINE [Concomitant]
     Dosage: UNK
     Route: 048
  8. BENERVA [Concomitant]
     Dosage: UNK
     Route: 048
  9. BECOZYME [Concomitant]
     Dosage: UNK
     Route: 048
  10. ENATEC [Concomitant]
     Dosage: UNK
     Route: 048
  11. INDOCIN [Concomitant]
     Dosage: UNK
     Route: 048
     Dates: start: 20070611, end: 20070613
  12. METOPROLOL SUCCINATE [Concomitant]
     Dosage: UNK
     Route: 048
     Dates: end: 20070613

REACTIONS (3)
  - CARDIAC FAILURE [None]
  - CYTOLYTIC HEPATITIS [None]
  - RHABDOMYOLYSIS [None]
